FAERS Safety Report 16579605 (Version 1)
Quarter: 2019Q3

REPORT INFORMATION
  Report Type: Spontaneous
  Country: IT (occurrence: IT)
  Receive Date: 20190716
  Receipt Date: 20190716
  Transmission Date: 20191004
  Serious: Yes (Death)
  Sender: FDA-Public Use
  Company Number: IT-BAUSCH-BL-2019-019615

PATIENT
  Age: 90 Year
  Sex: Female

DRUGS (2)
  1. METFORMIN HYDROCHLORIDE. [Suspect]
     Active Substance: METFORMIN HYDROCHLORIDE
     Indication: DIABETES MELLITUS
     Route: 048
  2. TRIATEC (RAMIPRIL) [Suspect]
     Active Substance: RAMIPRIL
     Indication: HYPERTENSION
     Route: 048

REACTIONS (5)
  - Acute kidney injury [Fatal]
  - Depressed level of consciousness [Fatal]
  - Metabolic acidosis [Fatal]
  - Cardiac arrest [Fatal]
  - Tachypnoea [Fatal]

NARRATIVE: CASE EVENT DATE: 20190702
